FAERS Safety Report 20920877 (Version 1)
Quarter: 2022Q2

REPORT INFORMATION
  Report Type: Spontaneous
  Country: US (occurrence: None)
  Receive Date: 20220606
  Receipt Date: 20220606
  Transmission Date: 20220721
  Serious: Yes (Disabling, Other)
  Sender: FDA-Public Use
  Company Number: None

PATIENT
  Age: 34 Year
  Sex: Female
  Weight: 76.5 kg

DRUGS (1)
  1. EMGALITY [Suspect]
     Active Substance: GALCANEZUMAB-GNLM
     Indication: Migraine
     Dosage: OTHER FREQUENCY : MONTHLY;?OTHER ROUTE : INJECTED INTO FATTY TISSUE AROUND STOMAC;?
     Route: 050
     Dates: start: 20190815, end: 20200415

REACTIONS (17)
  - Asthenia [None]
  - Arthritis [None]
  - Impaired healing [None]
  - Sensitive skin [None]
  - Dermatitis [None]
  - Weight increased [None]
  - Constipation [None]
  - Tinnitus [None]
  - Palpitations [None]
  - Arthritis bacterial [None]
  - Pruritus [None]
  - Migraine [None]
  - Impaired work ability [None]
  - Tinnitus [None]
  - Pruritus [None]
  - Skin lesion [None]
  - Alopecia [None]

NARRATIVE: CASE EVENT DATE: 20200315
